FAERS Safety Report 18916004 (Version 4)
Quarter: 2021Q2

REPORT INFORMATION
  Report Type: Spontaneous
  Country: FR (occurrence: FR)
  Receive Date: 20210218
  Receipt Date: 20210409
  Transmission Date: 20210717
  Serious: Yes (Death)
  Sender: FDA-Public Use
  Company Number: FR-BAXTER-2021BAX003193

PATIENT
  Age: 53 Year
  Sex: Male
  Weight: 76 kg

DRUGS (15)
  1. KEPPRA [Concomitant]
     Active Substance: LEVETIRACETAM
     Indication: PRODUCT USED FOR UNKNOWN INDICATION
     Dosage: LEVETIRACETAM (KEPPRA) 500 MG , CPR
     Route: 048
     Dates: start: 20210209
  2. RIFADINE [Concomitant]
     Active Substance: RIFAMPIN
     Indication: PRODUCT USED FOR UNKNOWN INDICATION
     Dosage: RIFAMPICINE(RIFADINE)600MG, PDR PR PERF, KT?IV: CATHETER INTRAVENOUS
     Route: 042
     Dates: start: 20210209
  3. MIMPARA [Concomitant]
     Active Substance: CINACALCET HYDROCHLORIDE
     Indication: PRODUCT USED FOR UNKNOWN INDICATION
     Dosage: CINACALCET (MIMPARA) 30 MG , CPR
     Route: 048
     Dates: start: 20210209
  4. TIENAM [Concomitant]
     Active Substance: CILASTATIN SODIUM\IMIPENEM
     Indication: PRODUCT USED FOR UNKNOWN INDICATION
     Dosage: TIENAM(IMIPENEM/CILASTATINE)500/500MG,IV
     Route: 042
     Dates: start: 20210209
  5. EUPANTOL [Concomitant]
     Active Substance: PANTOPRAZOLE SODIUM
     Indication: PRODUCT USED FOR UNKNOWN INDICATION
     Dosage: EUPANTOL (PANTOPRAZOLE) 40MG,INJ OU PERF
     Route: 042
     Dates: start: 20210209
  6. KEPPRA [Concomitant]
     Active Substance: LEVETIRACETAM
     Route: 048
  7. ORBENINE [Concomitant]
     Active Substance: CLOXACILLIN SODIUM
     Indication: PRODUCT USED FOR UNKNOWN INDICATION
     Dosage: ORBENINE(CLOXACILLINE)1G, KT?IV: CATHETER INTRAVENOUS
     Route: 042
     Dates: start: 20210209
  8. DEXAMETHASONE. [Concomitant]
     Active Substance: DEXAMETHASONE
     Indication: PRODUCT USED FOR UNKNOWN INDICATION
     Dosage: DEXAMETHASONE 4MG/1ML,SOL INJ,AMP, IVD: DIRECT INTRAVENOUS
     Route: 042
     Dates: start: 20210209
  9. UMULINE RAPIDE [Concomitant]
     Active Substance: INSULIN HUMAN
     Indication: PRODUCT USED FOR UNKNOWN INDICATION
     Dosage: UMULINE RAPIDE 100 UI/ML,SOL INJ, FLACON, 0.3 ML/HR, DEXTRO 4...8 MMOL/L, IVSE: INTRAVENOUS ELECTRIC
     Route: 042
     Dates: start: 20210209
  10. NORADRENALINE [Concomitant]
     Active Substance: NOREPINEPHRINE
     Indication: PRODUCT USED FOR UNKNOWN INDICATION
     Dosage: NORADRENALINE 8MG/4ML SOL PR PERF, 1,4MG/H PASM 60...100 MMHG, KT?IVSE: CATHETER INTRAVENOUS ELECTRI
     Route: 042
     Dates: start: 20210209
  11. VANCOCINE [Concomitant]
     Active Substance: VANCOMYCIN
     Indication: PRODUCT USED FOR UNKNOWN INDICATION
     Dosage: VANCOCINE(VANCOMYCINE)500MG, PDR PR PERF, 2 ML/HR, CONTINUOUSLY IVSE: INTRAVENOUS ELECTRIC SYRINGE
     Route: 042
     Dates: start: 20210209
  12. PHOXILIUM 1,2 MMOL/L PHOSPHATE, SOLUTION POUR HEMODIALYSE ET HEMOFILTR [Suspect]
     Active Substance: CALCIUM CL\MAGNESIUM CL\POTASSIUM CL\SODIUM BICAR\SODIUM CL\SODIUM PHOSPHATE,DIB
     Indication: DIALYSIS
     Route: 065
  13. RIFAMPICIN [Concomitant]
     Active Substance: RIFAMPIN
     Indication: LOCALISED INFECTION
     Dosage: ON DIALYSIS DAYS
     Route: 065
  14. TAZOCILLIN [Concomitant]
     Active Substance: PIPERACILLIN SODIUM\TAZOBACTAM SODIUM
     Indication: LOCALISED INFECTION
     Route: 042
  15. CIFLOX [Concomitant]
     Active Substance: CIPROFLOXACIN
     Indication: PRODUCT USED FOR UNKNOWN INDICATION
     Dosage: CIFLOX(CIPROFLOXACINE) 400MG/200ML ,PERF
     Route: 042
     Dates: start: 20210209

REACTIONS (5)
  - Metabolic acidosis [Fatal]
  - Cardio-respiratory arrest [Fatal]
  - Hyperkalaemia [Recovered/Resolved]
  - Hyperkalaemia [Fatal]
  - Cardio-respiratory arrest [Recovered/Resolved]

NARRATIVE: CASE EVENT DATE: 20210209
